FAERS Safety Report 9839021 (Version 2)
Quarter: 2014Q3

REPORT INFORMATION
  Report Type: Spontaneous
  Country: US (occurrence: US)
  Receive Date: 20140123
  Receipt Date: 20140807
  Transmission Date: 20150326
  Serious: Yes (Hospitalization, Other)
  Sender: FDA-Public Use
  Company Number: US-009507513-1401USA010043

PATIENT
  Sex: Female
  Weight: 73.47 kg

DRUGS (1)
  1. NUVARING [Suspect]
     Active Substance: ETHINYL ESTRADIOL\ETONOGESTREL
     Indication: CONTRACEPTION
     Dosage: 0.12-0.015 MG/24 HR, ONE EVERY 3 WEEKS
     Route: 067
     Dates: end: 20130526

REACTIONS (4)
  - Pulmonary embolism [Unknown]
  - Fungal infection [Unknown]
  - Deep vein thrombosis [Unknown]
  - Vaginal infection [Unknown]

NARRATIVE: CASE EVENT DATE: 20130128
